FAERS Safety Report 7677512-0 (Version None)
Quarter: 2011Q3

REPORT INFORMATION
  Report Type: 
  Country: None (occurrence: None)
  Receive Date: 20110811
  Receipt Date: 20110802
  Transmission Date: 20111222
  Serious: Yes (Hospitalization)
  Sender: FDA-Public Use
  Company Number: US-JNJFOC-20110802217

PATIENT
  Sex: Female

DRUGS (9)
  1. DEPO-PROVERA [Concomitant]
  2. TYLENOL-500 [Concomitant]
     Indication: PREMEDICATION
  3. REMICADE [Suspect]
     Indication: CROHN'S DISEASE
     Route: 042
     Dates: start: 20110509
  4. BENADRYL [Concomitant]
     Indication: PREMEDICATION
  5. REMICADE [Suspect]
     Route: 042
     Dates: start: 20110506, end: 20110506
  6. REMICADE [Suspect]
     Route: 042
     Dates: start: 20101101
  7. SYNTHROID [Concomitant]
  8. CLARINEX [Concomitant]
  9. LEXAPRO [Concomitant]

REACTIONS (3)
  - RESPIRATORY ARREST [None]
  - CONVULSION [None]
  - INFUSION RELATED REACTION [None]
